FAERS Safety Report 7166145-0 (Version None)
Quarter: 2010Q4

REPORT INFORMATION
  Report Type: 
  Country: None (occurrence: None)
  Receive Date: 20101216
  Receipt Date: 20101207
  Transmission Date: 20110411
  Serious: Yes (Other)
  Sender: FDA-Public Use
  Company Number: JP-JNJFOC-20101101140

PATIENT
  Sex: Female
  Weight: 44 kg

DRUGS (1)
  1. CRAVIT [Suspect]
     Indication: ACNE
     Route: 048

REACTIONS (6)
  - FEELING ABNORMAL [None]
  - INCORRECT DOSE ADMINISTERED [None]
  - JOINT SWELLING [None]
  - OVERDOSE [None]
  - POLYARTHRITIS [None]
  - PYREXIA [None]
